FAERS Safety Report 13445173 (Version 1)
Quarter: 2017Q2

REPORT INFORMATION
  Report Type: Spontaneous
  Country: FR (occurrence: FR)
  Receive Date: 20170414
  Receipt Date: 20170414
  Transmission Date: 20170830
  Serious: Yes (Life-Threatening, Other)
  Sender: FDA-Public Use
  Company Number: FR-BRISTOL-MYERS SQUIBB COMPANY-BMS-2017-030767

PATIENT
  Age: 54 Year
  Sex: Male

DRUGS (4)
  1. ELIQUIS [Suspect]
     Active Substance: APIXABAN
     Indication: CEREBROVASCULAR ACCIDENT PROPHYLAXIS
     Dosage: 2.5 MG, BID
     Route: 048
     Dates: start: 20161019, end: 20170303
  2. CALCIPARINE [Suspect]
     Active Substance: HEPARIN CALCIUM
     Indication: PRODUCT USED FOR UNKNOWN INDICATION
     Dosage: UNK
     Route: 058
     Dates: start: 20170308
  3. CALCIPARINE [Suspect]
     Active Substance: HEPARIN CALCIUM
     Indication: PRODUCT USED FOR UNKNOWN INDICATION
     Dosage: 0.5 ML, BID
     Route: 065
     Dates: start: 20170321
  4. CALCIPARINE [Suspect]
     Active Substance: HEPARIN CALCIUM
     Indication: ISCHAEMIC STROKE
     Dosage: 0.8 ML, BID
     Route: 058
     Dates: start: 20170304, end: 20170307

REACTIONS (5)
  - Pulmonary resection [Unknown]
  - Shock haemorrhagic [Unknown]
  - Anaemia [Recovered/Resolved]
  - Haemothorax [Recovered/Resolved]
  - Haemostasis [Unknown]

NARRATIVE: CASE EVENT DATE: 20170308
